FAERS Safety Report 24270102 (Version 1)
Quarter: 2024Q3

REPORT INFORMATION
  Report Type: Spontaneous
  Country: US (occurrence: US)
  Receive Date: 20240830
  Receipt Date: 20240830
  Transmission Date: 20241017
  Serious: Yes (Life-Threatening, Hospitalization, Other)
  Sender: BRISTOL MYERS SQUIBB
  Company Number: US-BRISTOL-MYERS SQUIBB COMPANY-2024-137409

PATIENT
  Sex: Male

DRUGS (1)
  1. OPDUALAG [Suspect]
     Active Substance: NIVOLUMAB\RELATLIMAB
     Indication: Metastatic malignant melanoma
     Dosage: 480 MG NIVOLUMAB AND 160 MG RELATLIMAB
     Route: 042

REACTIONS (1)
  - Myasthenia gravis [Unknown]
